FAERS Safety Report 8914559 (Version 2)
Quarter: 2012Q4

REPORT INFORMATION
  Report Type: 
  Country: GR (occurrence: GR)
  Receive Date: 20121116
  Receipt Date: 20121227
  Transmission Date: 20130627
  Serious: Yes (Other)
  Sender: FDA-Public Use
  Company Number: GR-ABBOTT-12P-066-1007533-00

PATIENT
  Age: 73 Year
  Sex: Female

DRUGS (4)
  1. ADALIMUMAB [Suspect]
     Indication: RHEUMATOID ARTHRITIS
  2. PREDNISOLONE [Concomitant]
     Indication: RHEUMATOID ARTHRITIS
  3. RABEPRAZOL [Concomitant]
     Indication: DUODENAL ULCER
  4. SOTALOL [Concomitant]
     Indication: ATRIAL FIBRILLATION

REACTIONS (2)
  - Cervical myelopathy [Recovered/Resolved]
  - Vitamin B12 deficiency [Recovered/Resolved]
